FAERS Safety Report 7192270-4 (Version None)
Quarter: 2010Q4

REPORT INFORMATION
  Report Type: 
  Country: None (occurrence: None)
  Receive Date: 20101223
  Receipt Date: 20101213
  Transmission Date: 20110411
  Serious: Yes (Hospitalization)
  Sender: FDA-Public Use
  Company Number: GXKR2010SI14135

PATIENT
  Sex: Female

DRUGS (3)
  1. WARFARIN (NGX) [Suspect]
     Route: 065
  2. AMIODARONE (NGX) [Interacting]
     Route: 065
  3. MELOXICAM [Interacting]
     Route: 065

REACTIONS (2)
  - DRUG INTERACTION [None]
  - HAEMORRHAGE [None]
